FAERS Safety Report 8538622-9 (Version None)
Quarter: 2012Q3

REPORT INFORMATION
  Report Type: 
  Country: None (occurrence: None)
  Receive Date: 20120718
  Receipt Date: 20120718
  Transmission Date: 20120928
  Serious: Yes (Other)
  Sender: FDA-Public Use
  Company Number: None

PATIENT
  Age: 49 Year
  Sex: Female
  Weight: 108.8633 kg

DRUGS (1)
  1. CIPROFLOXACIN HCL [Suspect]
     Indication: BRONCHITIS
     Dates: start: 20120401, end: 20120501

REACTIONS (4)
  - ABASIA [None]
  - INFLAMMATION [None]
  - TENDON PAIN [None]
  - TENDON INJURY [None]
